FAERS Safety Report 22073122 (Version 2)
Quarter: 2023Q1

REPORT INFORMATION
  Report Type: Spontaneous
  Country: CH (occurrence: None)
  Receive Date: 20230308
  Receipt Date: 20230316
  Transmission Date: 20230417
  Serious: Yes (Other)
  Sender: FDA-Public Use
  Company Number: CH-ROCHE-3297987

PATIENT
  Age: 51 Year

DRUGS (3)
  1. HERCEPTIN [Suspect]
     Active Substance: TRASTUZUMAB
     Indication: Product used for unknown indication
     Dosage: )N ON 09 OCT 2020, TRASTUZUMAB WAS STOPPED.
     Route: 065
  2. CAPECITABINE [Suspect]
     Active Substance: CAPECITABINE
     Indication: Product used for unknown indication
     Route: 048
  3. TUKYSA [Suspect]
     Active Substance: TUCATINIB
     Indication: HER2 positive breast cancer
     Route: 065

REACTIONS (5)
  - Disease progression [Unknown]
  - Diarrhoea [Unknown]
  - Asthenia [Unknown]
  - Hypercreatininaemia [Recovered/Resolved]
  - Thrombocytopenia [Unknown]
